FAERS Safety Report 4495455-0 (Version None)
Quarter: 2004Q4

REPORT INFORMATION
  Report Type: 
  Country: None (occurrence: None)
  Receive Date: 20041108
  Receipt Date: 20041029
  Transmission Date: 20050328
  Serious: Yes (Other)
  Sender: FDA-Public Use
  Company Number: 200418387US

PATIENT
  Sex: 0

DRUGS (1)
  1. KETEK [Suspect]
     Route: 048

REACTIONS (2)
  - ABASIA [None]
  - MUSCULOSKELETAL STIFFNESS [None]
